FAERS Safety Report 4961568-X (Version None)
Quarter: 2006Q1

REPORT INFORMATION
  Report Type: 
  Country: None (occurrence: None)
  Receive Date: 20060329
  Receipt Date: 20060317
  Transmission Date: 20060701
  Serious: Yes (Other)
  Sender: FDA-Public Use
  Company Number: A-CH2006-11824

PATIENT
  Sex: Female
  Weight: 60 kg

DRUGS (8)
  1. TRACLEER [Suspect]
     Indication: PULMONARY HYPERTENSION
     Dosage: ORAL
     Route: 048
     Dates: end: 20051216
  2. WARFARIN SODIUM [Concomitant]
  3. PREDNISOLONE [Concomitant]
  4. LISINOPRIL [Concomitant]
  5. FERROUS SULFATE TAB [Concomitant]
  6. AMLODIPINE [Concomitant]
  7. OMEPRAZOLE [Concomitant]
  8. CALCIUM (CALCIUM) [Concomitant]

REACTIONS (4)
  - ARTHRITIS [None]
  - CONDITION AGGRAVATED [None]
  - FATIGUE [None]
  - HEPATOTOXICITY [None]
